FAERS Safety Report 24939628 (Version 2)
Quarter: 2025Q2

REPORT INFORMATION
  Report Type: Spontaneous
  Country: US (occurrence: US)
  Receive Date: 20250207
  Receipt Date: 20250502
  Transmission Date: 20250717
  Serious: Yes (Hospitalization, Other)
  Sender: BRISTOL-MYERS SQUIBB COMPANY
  Company Number: US-BRISTOL-MYERS SQUIBB COMPANY-2025-014902

PATIENT
  Age: 58 Year
  Sex: Male
  Weight: 97.98 kg

DRUGS (14)
  1. SOTYKTU [Suspect]
     Active Substance: DEUCRAVACITINIB
     Indication: Psoriasis
  2. TYLENOL [Concomitant]
     Active Substance: ACETAMINOPHEN
     Indication: Product used for unknown indication
     Dosage: 2 TABLETS EVERY 8 HOURS; DISPENSED - 80 TABLETS
     Route: 048
     Dates: start: 20231013
  3. ASPIRIN [Concomitant]
     Active Substance: ASPIRIN
     Indication: Thrombosis prophylaxis
     Dosage: DISPENSED - 60 TABLETS
     Route: 048
     Dates: start: 20231013, end: 20241217
  4. LIPITOR [Concomitant]
     Active Substance: ATORVASTATIN CALCIUM
     Indication: Product used for unknown indication
     Dosage: EVERY NIGHT AT BEDTIME
     Route: 048
     Dates: end: 20241219
  5. KEFLEX [Concomitant]
     Active Substance: CEPHALEXIN
     Indication: Product used for unknown indication
     Dosage: FOR 213 DAYS DISPENSED - 60 CAPSULES; REFILL - 7
     Route: 048
  6. HYDROCORTISONE [Concomitant]
     Active Substance: HYDROCORTISONE
     Indication: Pruritus
     Dosage: AS NEEDED
  7. INULIN [Concomitant]
     Active Substance: INULIN
     Indication: Product used for unknown indication
     Route: 048
  8. LEVOTHYROXINE [Concomitant]
     Active Substance: LEVOTHYROXINE
     Indication: Product used for unknown indication
     Dosage: EVERY MORNING
     Route: 048
  9. MELATONIN [Concomitant]
     Active Substance: MELATONIN
     Indication: Product used for unknown indication
     Route: 048
  10. BIOFREEZE [Concomitant]
     Active Substance: MENTHOL
     Indication: Pain
  11. FLORASTOR [SACCHAROMYCES BOULARDII] [Concomitant]
     Indication: Product used for unknown indication
     Dosage: EVERY EVENING
     Route: 048
     Dates: start: 20161128
  12. FLOMAX [Concomitant]
     Active Substance: TAMSULOSIN HYDROCHLORIDE
     Indication: Product used for unknown indication
     Dosage: DAILY BEFORE SUPPER
     Route: 048
  13. MICARDIS [Concomitant]
     Active Substance: TELMISARTAN
     Indication: Product used for unknown indication
     Route: 048
     Dates: start: 20190326
  14. COLACE [Concomitant]
     Active Substance: DOCUSATE SODIUM
     Indication: Product used for unknown indication
     Dosage: QTY - 40 CAPS
     Route: 048
     Dates: start: 20231013, end: 20231121

REACTIONS (7)
  - Post procedural infection [Unknown]
  - Arthropathy [Unknown]
  - Night sweats [Unknown]
  - Benign prostatic hyperplasia [Unknown]
  - Urinary retention postoperative [Unknown]
  - Post procedural complication [Unknown]
  - Staphylococcal abscess [Unknown]

NARRATIVE: CASE EVENT DATE: 20230921
